FAERS Safety Report 9974538 (Version 1)
Quarter: 2014Q1

REPORT INFORMATION
  Report Type: Report from Study
  Country: US (occurrence: US)
  Receive Date: 20140306
  Receipt Date: 20140306
  Transmission Date: 20141002
  Serious: No
  Sender: FDA-Public Use
  Company Number: US-ABBVIE-13P-163-1159371-00

PATIENT
  Sex: Male

DRUGS (3)
  1. HUMIRA [Suspect]
     Indication: COLITIS ULCERATIVE
     Dosage: 2 PENS ON DAY 1 AND 2, 2 PENS
     Route: 058
     Dates: start: 20131017, end: 20131017
  2. HUMIRA [Suspect]
     Dosage: DAY 2
     Route: 058
  3. HUMIRA [Suspect]
     Route: 058

REACTIONS (2)
  - Joint swelling [Recovered/Resolved]
  - Injection site reaction [Unknown]
